FAERS Safety Report 21764955 (Version 1)
Quarter: 2022Q4

REPORT INFORMATION
  Report Type: Spontaneous
  Country: US (occurrence: None)
  Receive Date: 20221221
  Receipt Date: 20221221
  Transmission Date: 20230112
  Serious: Yes (Hospitalization)
  Sender: FDA-Public Use
  Company Number: None

PATIENT

DRUGS (1)
  1. FENTANYL [Suspect]
     Active Substance: FENTANYL
     Dosage: OTHER STRENGTH : 1000/100 UG/ML;?

REACTIONS (4)
  - Blood pressure decreased [None]
  - Device programming error [None]
  - Incorrect dose administered [None]
  - Wrong rate [None]
